FAERS Safety Report 9002756 (Version 1)
Quarter: 2013Q1

REPORT INFORMATION
  Report Type: Spontaneous
  Country: US (occurrence: US)
  Receive Date: 20130107
  Receipt Date: 20130107
  Transmission Date: 20140127
  Serious: No
  Sender: FDA-Public Use
  Company Number: US-GLAXOSMITHKLINE-A0999453A

PATIENT
  Age: 46 Year
  Sex: Female

DRUGS (13)
  1. BENLYSTA [Suspect]
     Indication: SYSTEMIC LUPUS ERYTHEMATOSUS
     Route: 042
  2. MEDROL [Concomitant]
  3. OXYCODON [Concomitant]
  4. SYNTHROID [Concomitant]
  5. COUMADIN [Concomitant]
  6. LORAZEPAM [Concomitant]
  7. LANTUS [Concomitant]
  8. DURAGESIC [Concomitant]
  9. LISINOPRIL [Concomitant]
  10. OMEPRAZOLE [Concomitant]
  11. SOMA [Concomitant]
  12. PHENERGAN [Concomitant]
  13. SINGULAIR [Concomitant]

REACTIONS (2)
  - Headache [Recovered/Resolved]
  - Headache [Not Recovered/Not Resolved]
